FAERS Safety Report 9832439 (Version 1)
Quarter: 2014Q1

REPORT INFORMATION
  Report Type: Spontaneous
  Country: CH (occurrence: CH)
  Receive Date: 20140121
  Receipt Date: 20140121
  Transmission Date: 20141002
  Serious: Yes (Hospitalization, Other)
  Sender: FDA-Public Use
  Company Number: CH-ACTELION-A-CH2014-93356

PATIENT
  Age: 28 Year
  Sex: Female

DRUGS (9)
  1. TRACLEER [Suspect]
     Indication: RAYNAUD^S PHENOMENON
     Dosage: UNK
     Route: 048
     Dates: start: 200812, end: 201007
  2. SANDIMMUN [Suspect]
     Dosage: 100 MG, BID
     Dates: start: 200904
  3. SANDIMMUN [Suspect]
     Dosage: UNK
     Dates: start: 200712, end: 200805
  4. PREDNISONE [Concomitant]
     Dosage: 7.5 MG, OD
  5. PANTOZOL [Concomitant]
     Dosage: 40 MG, BID
  6. ASPIRIN CARDIO [Concomitant]
     Dosage: 100 MG, OD
  7. AMLODIPINE [Concomitant]
     Dosage: 5 MG, OD
  8. CALCIMAGON D3 [Concomitant]
     Dosage: 1 MG, OD
  9. FERRUM HAUSMAN [Concomitant]

REACTIONS (16)
  - Peripheral arterial occlusive disease [Unknown]
  - Skin discolouration [Unknown]
  - Hypersensitivity vasculitis [Unknown]
  - Rash erythematous [Unknown]
  - Cervicitis human papilloma virus [Unknown]
  - Cervical conisation [Recovered/Resolved]
  - Drug ineffective [Unknown]
  - Drug interaction [Unknown]
  - Tension headache [Unknown]
  - Pneumomediastinum [Recovered/Resolved]
  - Barrett^s oesophagus [Unknown]
  - Gastrooesophageal reflux disease [Unknown]
  - Peripheral nerve paresis [Recovered/Resolved]
  - Myopathy [Not Recovered/Not Resolved]
  - Muscle contractions involuntary [Not Recovered/Not Resolved]
  - Muscle spasms [Not Recovered/Not Resolved]
